FAERS Safety Report 5479073-3 (Version None)
Quarter: 2007Q4

REPORT INFORMATION
  Report Type: 
  Country: None (occurrence: None)
  Receive Date: 20071002
  Receipt Date: 20070917
  Transmission Date: 20080405
  Serious: Yes (Other)
  Sender: FDA-Public Use
  Company Number: 07-001899

PATIENT
  Age: 18 Year
  Sex: Female

DRUGS (9)
  1. FEMCON FE [Suspect]
     Indication: HAEMORRHAGE
     Dosage: 0.4MG/35MCG, QD, ORAL THREE TO FOUR TIMES DAILY, ORAL
     Route: 048
     Dates: start: 20070801, end: 20070801
  2. FEMCON FE [Suspect]
     Indication: VAGINAL HAEMORRHAGE
     Dosage: 0.4MG/35MCG, QD, ORAL THREE TO FOUR TIMES DAILY, ORAL
     Route: 048
     Dates: start: 20070801, end: 20070801
  3. FEMCON FE [Suspect]
     Indication: HAEMORRHAGE
     Dosage: 0.4MG/35MCG, QD, ORAL THREE TO FOUR TIMES DAILY, ORAL
     Route: 048
     Dates: start: 20070801, end: 20070901
  4. FEMCON FE [Suspect]
     Indication: VAGINAL HAEMORRHAGE
     Dosage: 0.4MG/35MCG, QD, ORAL THREE TO FOUR TIMES DAILY, ORAL
     Route: 048
     Dates: start: 20070801, end: 20070901
  5. ZOLOFT [Concomitant]
  6. HALDOL [Concomitant]
  7. PAXIL [Concomitant]
  8. IRON [Concomitant]
  9. CODEINE SUL TAB [Concomitant]

REACTIONS (6)
  - ANAEMIA [None]
  - DRUG INEFFECTIVE FOR UNAPPROVED INDICATION [None]
  - DYSPNOEA [None]
  - HYPERHIDROSIS [None]
  - PAIN IN EXTREMITY [None]
  - VISION BLURRED [None]
